FAERS Safety Report 18483388 (Version 1)
Quarter: 2020Q4

REPORT INFORMATION
  Report Type: Spontaneous
  Country: US (occurrence: US)
  Receive Date: 20201109
  Receipt Date: 20201109
  Transmission Date: 20210114
  Serious: Yes (Life-Threatening, Hospitalization, Other)
  Sender: FDA-Public Use
  Company Number: US-009507513-2010USA012136

PATIENT
  Age: 74 Year
  Sex: Female

DRUGS (2)
  1. EVEROLIMUS. [Interacting]
     Active Substance: EVEROLIMUS
     Indication: ENDOMETRIAL CANCER
  2. PRINIVIL [Suspect]
     Active Substance: LISINOPRIL
     Route: 048

REACTIONS (4)
  - Angioedema [Recovering/Resolving]
  - Mouth ulceration [Recovered/Resolved]
  - Drug interaction [Recovering/Resolving]
  - Swollen tongue [Recovered/Resolved]
